FAERS Safety Report 14495714 (Version 2)
Quarter: 2018Q1

REPORT INFORMATION
  Report Type: Spontaneous
  Country: FR (occurrence: FR)
  Receive Date: 20180206
  Receipt Date: 20180307
  Transmission Date: 20180509
  Serious: No
  Sender: FDA-Public Use
  Company Number: FR-009507513-1802FRA001264

PATIENT
  Age: 27 Year
  Sex: Female

DRUGS (3)
  1. NUVARING [Suspect]
     Active Substance: ETHINYL ESTRADIOL\ETONOGESTREL
     Dosage: 3 WEEKS IN, ONE WEEK OUT
     Route: 067
     Dates: start: 20171226, end: 20180109
  2. NUVARING [Suspect]
     Active Substance: ETHINYL ESTRADIOL\ETONOGESTREL
     Dosage: 3 WEEKS IN, ONE WEEK OUT
     Route: 067
     Dates: start: 20161102
  3. NUVARING [Suspect]
     Active Substance: ETHINYL ESTRADIOL\ETONOGESTREL
     Indication: CONTRACEPTION
     Dosage: 3 WEEKS IN, ONE WEEK OUT
     Route: 067
     Dates: start: 20180116

REACTIONS (4)
  - Incorrect drug administration duration [Unknown]
  - Abdominal pain lower [Unknown]
  - Chest pain [Unknown]
  - Breast pain [Unknown]

NARRATIVE: CASE EVENT DATE: 20180109
